FAERS Safety Report 9918270 (Version 5)
Quarter: 2014Q2

REPORT INFORMATION
  Report Type: Report from Study
  Country: DE (occurrence: DE)
  Receive Date: 20140224
  Receipt Date: 20140509
  Transmission Date: 20141212
  Serious: Yes (Hospitalization, Other)
  Sender: FDA-Public Use
  Company Number: DE-ROCHE-1310070

PATIENT
  Age: 70 Year
  Sex: Female
  Weight: 58 kg

DRUGS (13)
  1. RITUXIMAB [Suspect]
     Indication: CHRONIC LYMPHOCYTIC LEUKAEMIA
     Dosage: ROUTE AS PER PROTOCOL
     Route: 042
     Dates: start: 20130417
  2. RITUXIMAB [Suspect]
     Dosage: 615MG
     Route: 042
     Dates: start: 20130625
  3. RITUXIMAB [Suspect]
     Route: 042
     Dates: start: 20130516, end: 20130517
  4. BENDAMUSTINE [Concomitant]
     Indication: CHRONIC LYMPHOCYTIC LEUKAEMIA
     Dosage: 147MG
     Route: 065
     Dates: start: 20130625
  5. PASPERTIN [Concomitant]
     Indication: NAUSEA
     Route: 048
     Dates: start: 20130615, end: 20130630
  6. DEXAMETHASON [Concomitant]
     Indication: PROPHYLAXIS
     Route: 048
     Dates: start: 20130627, end: 20130629
  7. SPIRIVA [Concomitant]
     Route: 065
  8. PANTOZOL (GERMANY) [Concomitant]
     Route: 048
  9. FOSAMAX [Concomitant]
     Route: 065
  10. ALLOPURINOL [Concomitant]
     Route: 065
  11. FLEBOGAMMA (IVIG) [Concomitant]
     Route: 042
  12. NOVALGIN (GERMANY) [Concomitant]
     Route: 048
     Dates: start: 20130601, end: 20130716
  13. CALCIVIT D [Concomitant]
     Route: 048

REACTIONS (6)
  - Febrile neutropenia [Recovered/Resolved]
  - Anaemia [Recovered/Resolved]
  - Pneumonia [Unknown]
  - Bone marrow failure [Unknown]
  - Hypersensitivity [Recovered/Resolved]
  - Pleural effusion [Unknown]
